FAERS Safety Report 14170486 (Version 7)
Quarter: 2019Q1

REPORT INFORMATION
  Report Type: Spontaneous
  Country: US (occurrence: US)
  Receive Date: 20171108
  Receipt Date: 20190221
  Transmission Date: 20190417
  Serious: Yes (Hospitalization, Other)
  Sender: FDA-Public Use
  Company Number: US-ACTELION-A-NJ2017-162197

PATIENT
  Age: 69 Year
  Sex: Female

DRUGS (1)
  1. OPSUMIT [Suspect]
     Active Substance: MACITENTAN
     Indication: PULMONARY ARTERIAL HYPERTENSION
     Dosage: 10 MG, QD
     Route: 048
     Dates: start: 20170306, end: 201809

REACTIONS (9)
  - Fatigue [Unknown]
  - Treatment noncompliance [Unknown]
  - Product dose omission [Unknown]
  - Dyspnoea exertional [Unknown]
  - Asthenia [Unknown]
  - Surgery [Unknown]
  - Cough [Unknown]
  - Lower respiratory tract congestion [Unknown]
  - Deafness [Unknown]

NARRATIVE: CASE EVENT DATE: 20180307
